FAERS Safety Report 7403661-8 (Version None)
Quarter: 2011Q2

REPORT INFORMATION
  Report Type: 
  Country: None (occurrence: None)
  Receive Date: 20110408
  Receipt Date: 20110325
  Transmission Date: 20111010
  Serious: Yes (Hospitalization, Other)
  Sender: FDA-Public Use
  Company Number: PHHY2011HR24352

PATIENT
  Age: 58 Year
  Sex: Male

DRUGS (4)
  1. PEPTORAN [Concomitant]
     Dosage: UNK UKN, UNK
     Route: 048
     Dates: end: 20100101
  2. LEXAURIN [Concomitant]
     Indication: ANXIETY DISORDER
     Dosage: UNK UKN, UNK
     Route: 048
     Dates: end: 20100101
  3. KETONAL FORTE [Suspect]
     Indication: BACK PAIN
     Dosage: 1-2 DF DAILY
  4. ASACOL [Concomitant]
     Indication: GASTROENTERITIS
     Dosage: UNK UKN, UNK
     Route: 048
     Dates: start: 20100101, end: 20110101

REACTIONS (7)
  - CORONARY ARTERY RESTENOSIS [None]
  - HYPERTENSION [None]
  - CORONARY ARTERY STENOSIS [None]
  - MYOCARDIAL INFARCTION [None]
  - THROMBOPHLEBITIS [None]
  - GASTRITIS BACTERIAL [None]
  - ANGINA PECTORIS [None]
